FAERS Safety Report 9441507 (Version 2)
Quarter: 2013Q4

REPORT INFORMATION
  Report Type: Report from Study
  Country: US (occurrence: US)
  Receive Date: 20130805
  Receipt Date: 20131120
  Transmission Date: 20140711
  Serious: Yes (Other)
  Sender: FDA-Public Use
  Company Number: US-ROCHE-1254923

PATIENT
  Sex: 0

DRUGS (2)
  1. RITUXIMAB [Suspect]
     Indication: NON-HODGKIN^S LYMPHOMA
     Dosage: ON DAY 1 OF EACH CYCLE
     Route: 065
  2. VORINOSTAT [Suspect]
     Indication: NON-HODGKIN^S LYMPHOMA
     Route: 048

REACTIONS (14)
  - Pulmonary embolism [Recovered/Resolved]
  - Hypophosphataemia [Unknown]
  - Syncope [Unknown]
  - Dehydration [Unknown]
  - Neutropenia [Unknown]
  - Thrombocytopenia [Unknown]
  - Fatigue [Unknown]
  - Hyperglycaemia [Unknown]
  - Anaemia [Unknown]
  - Hypotension [Unknown]
  - Pneumonia [Unknown]
  - Diarrhoea [Unknown]
  - Diverticulitis [Unknown]
  - Lymphopenia [Unknown]
